FAERS Safety Report 5340803-2 (Version None)
Quarter: 2007Q2

REPORT INFORMATION
  Report Type: 
  Country: None (occurrence: None)
  Receive Date: 20070405
  Receipt Date: 20070201
  Transmission Date: 20071010
  Serious: No
  Sender: FDA-Public Use
  Company Number: US200702000083

PATIENT
  Age: 13 Year
  Sex: Female
  Weight: 54.4 kg

DRUGS (3)
  1. CYMBALTA [Suspect]
     Indication: DEPRESSION
     Dosage: 30 MG, DAILY (1/D)
     Dates: start: 20070131
  2. WELLBUTRIN [Concomitant]
  3. LAMICTAL [Concomitant]

REACTIONS (4)
  - CRYING [None]
  - HEADACHE [None]
  - MUSCLE SPASMS [None]
  - NAUSEA [None]
